FAERS Safety Report 8828119 (Version 3)
Quarter: 2014Q2

REPORT INFORMATION
  Report Type: Report from Study
  Country: US (occurrence: US)
  Receive Date: 20121005
  Receipt Date: 20131120
  Transmission Date: 20141212
  Serious: Yes (Hospitalization)
  Sender: FDA-Public Use
  Company Number: US-TEVA-361891USA

PATIENT
  Age: 71 Year
  Sex: Male
  Weight: 70.78 kg

DRUGS (23)
  1. CUSTIRSEN [Suspect]
     Indication: NEOPLASM MALIGNANT
  2. PACLITAXEL [Suspect]
     Indication: NEOPLASM MALIGNANT
     Dosage: Q 3 WKS
     Dates: start: 20120925
  3. CARBOPLATIN [Suspect]
     Dosage: Q 3 WKS
     Route: 042
     Dates: start: 20120925
  4. NEULASTA [Concomitant]
     Indication: PROPHYLAXIS
     Route: 058
     Dates: start: 20120926
  5. SPIRIVA [Concomitant]
  6. SIMVASTATIN [Concomitant]
     Indication: HYPERLIPIDAEMIA
     Route: 048
  7. LISINOPRIL [Concomitant]
     Indication: HYPERTENSION
     Route: 048
  8. LEVOTHYROXINE [Concomitant]
     Indication: HYPOTHYROIDISM
     Route: 048
  9. ATENOLOL [Concomitant]
     Indication: HYPERTENSION
     Route: 048
  10. ZOMETA [Concomitant]
     Indication: SUPPLEMENTATION THERAPY
     Route: 042
  11. OMEPRAZOLE [Concomitant]
     Indication: GASTROOESOPHAGEAL REFLUX DISEASE
     Route: 048
  12. COMPAZINE [Concomitant]
     Indication: NAUSEA
     Route: 048
  13. LORAZEPAM [Concomitant]
     Indication: ANXIETY
     Route: 048
  14. LORAZEPAM [Concomitant]
     Indication: NAUSEA
  15. LORAZEPAM [Concomitant]
     Indication: INSOMNIA
  16. ACETAMINOPHEN [Concomitant]
     Indication: BACK PAIN
  17. ACETAMINOPHEN [Concomitant]
     Indication: CHEST PAIN
  18. MIRALAX [Concomitant]
     Indication: CONSTIPATION
     Route: 048
  19. STOOL SOFTENER [Concomitant]
     Indication: CONSTIPATION
     Route: 048
  20. DILAUDID [Concomitant]
     Indication: PAIN
     Route: 048
  21. DECADRON [Concomitant]
     Indication: PAIN
     Route: 048
  22. DECADRON [Concomitant]
     Indication: DYSPNOEA
  23. DECADRON [Concomitant]
     Indication: DECREASED APPETITE

REACTIONS (3)
  - Hyponatraemia [Recovered/Resolved]
  - Pneumonia [Recovering/Resolving]
  - Dehydration [Recovered/Resolved]
